FAERS Safety Report 8046899-1 (Version None)
Quarter: 2012Q1

REPORT INFORMATION
  Report Type: 
  Country: None (occurrence: None)
  Receive Date: 20120116
  Receipt Date: 20120110
  Transmission Date: 20120608
  Serious: No
  Sender: FDA-Public Use
  Company Number: US-JNJFOC-20120104019

PATIENT
  Sex: Female
  Weight: 90.72 kg

DRUGS (5)
  1. GLYBURIDE [Concomitant]
     Indication: DIABETES MELLITUS
     Dosage: 2-5 MG
     Route: 048
     Dates: start: 19900101
  2. FENTANYL-100 [Suspect]
     Route: 062
  3. DILAUDID [Concomitant]
     Indication: BREAKTHROUGH PAIN
     Dosage: AS NEEDED
     Route: 065
  4. FENTANYL-100 [Suspect]
     Indication: PAIN IN EXTREMITY
     Route: 062
  5. IBUPROFEN (ADVIL) [Concomitant]
     Indication: PAIN
     Dosage: AS NEEDED
     Route: 048

REACTIONS (3)
  - APPLICATION SITE PRURITUS [None]
  - APPLICATION SITE BURN [None]
  - INAPPROPRIATE SCHEDULE OF DRUG ADMINISTRATION [None]
